FAERS Safety Report 19450078 (Version 1)
Quarter: 2021Q2

REPORT INFORMATION
  Report Type: Spontaneous
  Country: ES (occurrence: ES)
  Receive Date: 20210622
  Receipt Date: 20210622
  Transmission Date: 20210717
  Serious: Yes (Other)
  Sender: FDA-Public Use
  Company Number: ES-PFIZER INC-2021661376

PATIENT
  Age: 67 Year
  Sex: Male
  Weight: 75 kg

DRUGS (3)
  1. PEMBROLIZUMAB. [Suspect]
     Active Substance: PEMBROLIZUMAB
     Indication: RENAL CELL CARCINOMA
     Dosage: 200 MG ( EVERY 21 DAYS)
     Route: 042
  2. RAMIPRIL. [Concomitant]
     Active Substance: RAMIPRIL
     Indication: HYPERTENSION
     Dosage: 5 MG, DAILY
     Route: 048
     Dates: start: 20210429
  3. AXITINIB [Suspect]
     Active Substance: AXITINIB
     Indication: RENAL CELL CARCINOMA
     Dosage: 5 MG/12H
     Route: 048
     Dates: start: 20210312, end: 20210520

REACTIONS (6)
  - Hepatotoxicity [Recovered/Resolved]
  - Hepatic cyst [Unknown]
  - Arteriosclerosis coronary artery [Unknown]
  - Neoplasm progression [Unknown]
  - Immune-mediated hepatic disorder [Recovered/Resolved]
  - Emphysema [Unknown]

NARRATIVE: CASE EVENT DATE: 20210506
